FAERS Safety Report 8297389-2 (Version None)
Quarter: 2012Q2

REPORT INFORMATION
  Report Type: 
  Country: None (occurrence: None)
  Receive Date: 20120417
  Receipt Date: 20120404
  Transmission Date: 20120825
  Serious: Yes (Hospitalization)
  Sender: FDA-Public Use
  Company Number: UTC-016998

PATIENT
  Age: 67 Year
  Sex: Female

DRUGS (4)
  1. REVATIO [Concomitant]
  2. DIURETICS (DIURETICS) [Concomitant]
  3. REMODULIN [Suspect]
     Indication: SARCOIDOSIS
     Dosage: 57.6 UG/KG (0.04 UG/KG, 1 IN 1 MIN),INTRAVENOUS
     Route: 042
     Dates: start: 20100907
  4. COUMADIN [Concomitant]

REACTIONS (3)
  - DEVICE RELATED INFECTION [None]
  - STAPHYLOCOCCAL INFECTION [None]
  - OSTEOMYELITIS [None]
